FAERS Safety Report 12184417 (Version 2)
Quarter: 2016Q1

REPORT INFORMATION
  Report Type: Report from Study
  Country: US (occurrence: US)
  Receive Date: 20160316
  Receipt Date: 20160323
  Transmission Date: 20160526
  Serious: Yes (Hospitalization)
  Sender: FDA-Public Use
  Company Number: US-HORIZON-HPN-100-014-0012-2016

PATIENT
  Age: 20 Year
  Sex: Male
  Weight: 62 kg

DRUGS (3)
  1. L-ARGININE [Concomitant]
     Active Substance: ARGININE
     Indication: ALVEOLITIS ALLERGIC
     Dosage: 442 MG/KG DAILY
     Dates: start: 20141111, end: 20150204
  2. RAVICTI [Suspect]
     Active Substance: GLYCEROL PHENYLBUTYRATE
     Indication: UREA CYCLE ENZYME DEFICIENCY
     Dosage: 6.5 ML TID UNTIL 11-JAN-2015; DECREASED TO 6 ML TID ON 13-JAN-2015
     Dates: start: 20141219, end: 20150122
  3. TRIAMCINOLONE [Concomitant]
     Active Substance: TRIAMCINOLONE
     Route: 061

REACTIONS (2)
  - Hyperammonaemia [Recovered/Resolved]
  - Acute respiratory failure [Recovered/Resolved]

NARRATIVE: CASE EVENT DATE: 20150111
